FAERS Safety Report 8705283 (Version 2)
Quarter: 2013Q3

REPORT INFORMATION
  Report Type: Report from Study
  Country: US (occurrence: US)
  Receive Date: 20120803
  Receipt Date: 20130730
  Transmission Date: 20140515
  Serious: No
  Sender: FDA-Public Use
  Company Number: US-ABBOTT-12P-163-0959259-00

PATIENT
  Age: 56 Year
  Sex: Female
  Weight: 62.65 kg

DRUGS (3)
  1. NIASPAN (COATED) 500MG [Suspect]
     Indication: BLOOD CHOLESTEROL INCREASED
     Dosage: AT BEDTIME
     Route: 048
     Dates: start: 20120701
  2. ASA [Suspect]
     Indication: PRODUCT USED FOR UNKNOWN INDICATION
     Dosage: AT BEDTIME
     Route: 048
     Dates: end: 20120714
  3. VIT D [Concomitant]
     Indication: PRODUCT USED FOR UNKNOWN INDICATION
     Dosage: 1000 IU EVERY DAY
     Route: 048

REACTIONS (8)
  - Fatigue [Recovered/Resolved]
  - Abdominal discomfort [Recovered/Resolved]
  - Sensory disturbance [Recovered/Resolved]
  - Headache [Recovered/Resolved]
  - Pain in extremity [Not Recovered/Not Resolved]
  - Erythema [Not Recovered/Not Resolved]
  - Pruritus [Not Recovered/Not Resolved]
  - Sensory disturbance [Not Recovered/Not Resolved]
